FAERS Safety Report 8787792 (Version 4)
Quarter: 2015Q1

REPORT INFORMATION
  Report Type: Report from Study
  Country: US (occurrence: US)
  Receive Date: 20120914
  Receipt Date: 20150319
  Transmission Date: 20150721
  Serious: Yes (Death)
  Sender: FDA-Public Use
  Company Number: US-ROCHE-1127659

PATIENT
  Sex: Male

DRUGS (8)
  1. AVASTIN [Suspect]
     Active Substance: BEVACIZUMAB
     Indication: LUNG NEOPLASM MALIGNANT
     Route: 042
     Dates: start: 20080509, end: 20110208
  2. DEXAMETHASONE. [Concomitant]
     Active Substance: DEXAMETHASONE
     Route: 042
  3. PALONOSETRON [Concomitant]
     Active Substance: PALONOSETRON
     Route: 042
  4. IRINOTECAN [Concomitant]
     Active Substance: IRINOTECAN
     Route: 042
  5. AVASTIN [Suspect]
     Active Substance: BEVACIZUMAB
     Indication: COLON CANCER
  6. HEPARIN [Concomitant]
     Active Substance: HEPARIN SODIUM
  7. AVASTIN [Suspect]
     Active Substance: BEVACIZUMAB
     Indication: COLON CANCER METASTATIC
  8. DEXTROSE. [Concomitant]
     Active Substance: DEXTROSE
     Route: 065

REACTIONS (2)
  - Drug ineffective [Unknown]
  - Death [Fatal]
